FAERS Safety Report 10527519 (Version 3)
Quarter: 2014Q4

REPORT INFORMATION
  Report Type: Spontaneous
  Country: US (occurrence: US)
  Receive Date: 20141020
  Receipt Date: 20141219
  Transmission Date: 20150528
  Serious: Yes (Hospitalization, Other)
  Sender: FDA-Public Use
  Company Number: PHEH2014US020399

PATIENT
  Age: 66 Year
  Sex: Female

DRUGS (17)
  1. DIOVAN HCT [Suspect]
     Active Substance: HYDROCHLOROTHIAZIDE\VALSARTAN
     Indication: HYPERTENSION
     Dosage: 1 DF (80 MG VALSARTAN/ 12.5 MG HYDROCHLOROTHIAZIDE), FORMULATION REPORTED AS JAM
     Route: 065
     Dates: start: 1990, end: 201411
  2. HYDROCHLOROTHIAZIDE,VALSARTAN [Suspect]
     Active Substance: HYDROCHLOROTHIAZIDE\VALSARTAN
     Indication: PRODUCT USED FOR UNKNOWN INDICATION
     Route: 065
  3. INFLUENZA VIRUS VACC SEASONAL INN [Suspect]
     Active Substance: INFLUENZA VIRUS VACCINE
     Indication: IMMUNISATION
     Route: 030
     Dates: start: 20141007, end: 20141007
  4. SUMATRIPTAN. [Suspect]
     Active Substance: SUMATRIPTAN
     Indication: PRODUCT USED FOR UNKNOWN INDICATION
     Route: 065
  5. PREDNISONE. [Suspect]
     Active Substance: PREDNISONE
     Indication: PRODUCT USED FOR UNKNOWN INDICATION
     Route: 065
  6. CELEBREX [Suspect]
     Active Substance: CELECOXIB
     Indication: PRODUCT USED FOR UNKNOWN INDICATION
     Route: 065
  7. ALPRAZOLAM. [Concomitant]
     Active Substance: ALPRAZOLAM
     Indication: INSOMNIA
  8. ALPRAZOLAM. [Concomitant]
     Active Substance: ALPRAZOLAM
     Indication: ANXIETY
     Dosage: 1 MG, UNK COUPLE TO THREE A DAY
     Route: 065
  9. ALPRAZOLAM. [Concomitant]
     Active Substance: ALPRAZOLAM
     Indication: PANIC ATTACK
  10. VALSARTAN. [Suspect]
     Active Substance: VALSARTAN
     Indication: PRODUCT USED FOR UNKNOWN INDICATION
     Route: 065
  11. FOSAMAX [Suspect]
     Active Substance: ALENDRONATE SODIUM
     Indication: PRODUCT USED FOR UNKNOWN INDICATION
     Route: 065
  12. ASPIRIN. [Concomitant]
     Active Substance: ASPIRIN
     Indication: PRODUCT USED FOR UNKNOWN INDICATION
     Route: 065
  13. DIOVAN [Suspect]
     Active Substance: VALSARTAN
     Indication: PRODUCT USED FOR UNKNOWN INDICATION
     Route: 065
  14. VIOXX [Suspect]
     Active Substance: ROFECOXIB
     Indication: PRODUCT USED FOR UNKNOWN INDICATION
     Route: 065
  15. BEXTRA [Suspect]
     Active Substance: VALDECOXIB
     Indication: PRODUCT USED FOR UNKNOWN INDICATION
     Route: 065
  16. ACETAMINOPHEN. [Concomitant]
     Active Substance: ACETAMINOPHEN
     Indication: PAIN
     Dosage: UNK DEPENDS ON A PAIN SINCE YEARS
     Route: 065
  17. HYDROCODONE [Concomitant]
     Active Substance: HYDROCODONE
     Indication: PAIN
     Dosage: UNK , SINCE YEARS
     Route: 065

REACTIONS (24)
  - Chromaturia [Recovering/Resolving]
  - Pyrexia [Recovering/Resolving]
  - Crepitations [Recovering/Resolving]
  - Fatigue [Recovering/Resolving]
  - Visual acuity reduced [Recovering/Resolving]
  - Malaise [Unknown]
  - Haemorrhage [Unknown]
  - Diarrhoea [Recovering/Resolving]
  - Photophobia [Recovering/Resolving]
  - Exophthalmos [Recovering/Resolving]
  - Hyperhidrosis [Recovering/Resolving]
  - Constipation [Recovering/Resolving]
  - Feeling abnormal [Unknown]
  - Thermal burn [Unknown]
  - Reaction to drug excipients [Unknown]
  - Abdominal pain upper [Unknown]
  - Urine odour abnormal [Recovering/Resolving]
  - Dysuria [Recovering/Resolving]
  - Dizziness [Recovering/Resolving]
  - Diverticulitis [Unknown]
  - Hot flush [Recovering/Resolving]
  - Joint injury [Recovering/Resolving]
  - Muscle tightness [Recovering/Resolving]
  - Headache [Unknown]

NARRATIVE: CASE EVENT DATE: 201410
